FAERS Safety Report 20322682 (Version 1)
Quarter: 2022Q1

REPORT INFORMATION
  Report Type: Spontaneous
  Country: US (occurrence: US)
  Receive Date: 20220111
  Receipt Date: 20220111
  Transmission Date: 20220423
  Serious: Yes (Other)
  Sender: FDA-Public Use
  Company Number: US-ViiV Healthcare Limited-US2021GSK254514

PATIENT
  Age: 50 Year
  Sex: Male

DRUGS (2)
  1. LAMIVUDINE [Suspect]
     Active Substance: LAMIVUDINE
     Indication: HIV infection
     Dosage: UNK
  2. ZIDOVUDINE [Suspect]
     Active Substance: ZIDOVUDINE
     Indication: HIV infection
     Dosage: UNK

REACTIONS (4)
  - Coccidioidomycosis [Recovered/Resolved]
  - Acquired immunodeficiency syndrome [Unknown]
  - Pulmonary mass [Unknown]
  - Treatment noncompliance [Unknown]
